FAERS Safety Report 8791595 (Version 2)
Quarter: 2012Q4

REPORT INFORMATION
  Report Type: 
  Country: BR (occurrence: BR)
  Receive Date: 20120918
  Receipt Date: 20120920
  Transmission Date: 20130627
  Serious: No
  Sender: FDA-Public Use
  Company Number: BR-PFIZER INC-2012225715

PATIENT
  Age: 36 Year
  Sex: Male
  Weight: 84 kg

DRUGS (1)
  1. CHAMPIX [Suspect]
     Indication: SMOKING CESSATION THERAPY
     Dosage: one tablet every 12 hours
     Route: 048
     Dates: start: 20120911

REACTIONS (5)
  - Formication [Recovered/Resolved]
  - Insomnia [Unknown]
  - Dry mouth [Recovered/Resolved]
  - Renal pain [Recovered/Resolved]
  - Abdominal pain [Unknown]
